FAERS Safety Report 6670017-5 (Version None)
Quarter: 2010Q2

REPORT INFORMATION
  Report Type: 
  Country: None (occurrence: None)
  Receive Date: 20100406
  Receipt Date: 20100202
  Transmission Date: 20101027
  Serious: No
  Sender: FDA-Public Use
  Company Number: US-ALLERGAN-1001316US

PATIENT
  Age: 66 Year
  Sex: Female

DRUGS (9)
  1. LATISSE [Suspect]
     Indication: GROWTH OF EYELASHES
     Dosage: 1 GTT, QAM
     Route: 061
     Dates: start: 20090501
  2. ENBREL [Concomitant]
  3. METHOTREXATE [Concomitant]
  4. PRAVASTATIN [Concomitant]
  5. BABY ASPIRIN [Concomitant]
  6. FOLIC ACID [Concomitant]
  7. VITAMIN B COMPLEX TAB [Concomitant]
  8. VITAMIN E [Concomitant]
  9. FISH OIL [Concomitant]

REACTIONS (6)
  - ALOPECIA [None]
  - DRUG ADMINISTRATION ERROR [None]
  - EYE PRURITUS [None]
  - EYELIDS PRURITUS [None]
  - MADAROSIS [None]
  - OCULAR HYPERAEMIA [None]
